FAERS Safety Report 4508623-6 (Version None)
Quarter: 2004Q4

REPORT INFORMATION
  Report Type: 
  Country: None (occurrence: None)
  Receive Date: 20041123
  Receipt Date: 20040430
  Transmission Date: 20050328
  Serious: No
  Sender: FDA-Public Use
  Company Number: US-GLAXOSMITHKLINE-A0509566A

PATIENT
  Sex: Male

DRUGS (4)
  1. WELLBUTRIN SR [Suspect]
     Indication: DRUG USE FOR UNKNOWN INDICATION
     Route: 048
  2. WELLBUTRIN XL [Suspect]
     Indication: DRUG USE FOR UNKNOWN INDICATION
     Route: 048
  3. KLONOPIN [Concomitant]
     Indication: DRUG USE FOR UNKNOWN INDICATION
     Dosage: .5MG THREE TIMES PER DAY
     Route: 048
  4. EFFEXOR [Concomitant]
     Indication: DRUG USE FOR UNKNOWN INDICATION
     Dosage: 75MG AT NIGHT
     Route: 048

REACTIONS (3)
  - ASTHENIA [None]
  - DEPRESSED MOOD [None]
  - LACRIMATION INCREASED [None]
